FAERS Safety Report 11889120 (Version 1)
Quarter: 2016Q1

REPORT INFORMATION
  Report Type: Spontaneous
  Country: US (occurrence: None)
  Receive Date: 20160104
  Receipt Date: 20160104
  Transmission Date: 20160526
  Serious: Yes (Hospitalization, Disabling)
  Sender: FDA-Public Use
  Company Number: None

PATIENT
  Age: 9 Year
  Sex: Female
  Weight: 49.44 kg

DRUGS (4)
  1. QVAR WITH CHAMBER [Concomitant]
  2. POLYETHYLENE GLYCOL [Suspect]
     Active Substance: POLYETHYLENE GLYCOLS
     Indication: CONSTIPATION
     Route: 048
     Dates: start: 20151106, end: 20151231
  3. ALBUTEROL. [Concomitant]
     Active Substance: ALBUTEROL
  4. GUMMIES MULTIVITAMIN [Concomitant]

REACTIONS (15)
  - Insomnia [None]
  - Asthenia [None]
  - Fall [None]
  - Educational problem [None]
  - Movement disorder [None]
  - Pain [None]
  - Loss of control of legs [None]
  - Pain in extremity [None]
  - Abasia [None]
  - Burning sensation [None]
  - Crying [None]
  - Abnormal behaviour [None]
  - Mental disorder [None]
  - Abdominal pain upper [None]
  - Thumb sucking [None]

NARRATIVE: CASE EVENT DATE: 20151106
